FAERS Safety Report 10220481 (Version 2)
Quarter: 2014Q2

REPORT INFORMATION
  Report Type: Spontaneous
  Country: AU (occurrence: AU)
  Receive Date: 20140606
  Receipt Date: 20140606
  Transmission Date: 20141212
  Serious: Yes (Death)
  Sender: FDA-Public Use
  Company Number: AU-PFIZER INC-2013140662

PATIENT
  Sex: Male

DRUGS (1)
  1. SUTENT [Suspect]
     Indication: PARAGANGLION NEOPLASM
     Dosage: 37.5 MG (12.5MG AND 25MG, DAILY) ONCE DAILY CONTINUOUS
     Dates: start: 201009

REACTIONS (2)
  - Death [Fatal]
  - Off label use [Unknown]
